FAERS Safety Report 10312836 (Version 1)
Quarter: 2014Q3

REPORT INFORMATION
  Report Type: Spontaneous
  Country: GB (occurrence: None)
  Receive Date: 20140716
  Receipt Date: 20140716
  Transmission Date: 20150326
  Serious: Yes (Hospitalization)
  Sender: FDA-Public Use
  Company Number: FK201402724

PATIENT
  Age: 76 Year
  Sex: Male
  Weight: 82.55 kg

DRUGS (9)
  1. FOLIC ACID. [Concomitant]
     Active Substance: FOLIC ACID
  2. IBUPROFEN. [Concomitant]
     Active Substance: IBUPROFEN
  3. AMOXICILLIN. [Concomitant]
     Active Substance: AMOXICILLIN
  4. PARACETAMOL [Concomitant]
     Active Substance: ACETAMINOPHEN
  5. CLARITHROMYCIN. [Concomitant]
     Active Substance: CLARITHROMYCIN
  6. SPIRIVA [Concomitant]
     Active Substance: TIOTROPIUM BROMIDE MONOHYDRATE
  7. METHOTREXATE (MANUFACTURER UNKNOWN) (METHOTREXATE) (METHOTREXATE) [Suspect]
     Active Substance: METHOTREXATE
     Indication: RHEUMATOID ARTHRITIS
     Dosage: 8 DOSAGE FORMS, 1 IN 1 WK, ORAL
     Route: 048
     Dates: start: 2013, end: 201406
  8. LANSOPRAZOLE. [Concomitant]
     Active Substance: LANSOPRAZOLE
  9. AMITRIPTYLINE [Concomitant]
     Active Substance: AMITRIPTYLINE

REACTIONS (25)
  - Eye irritation [None]
  - Respiratory tract inflammation [None]
  - Melaena [None]
  - Somnolence [None]
  - Peripheral swelling [None]
  - Infection [None]
  - Lung hyperinflation [None]
  - Vision blurred [None]
  - Diarrhoea [None]
  - Oral pain [None]
  - Myalgia [None]
  - Vomiting [None]
  - Muscular weakness [None]
  - Pyrexia [None]
  - Rash [None]
  - Constipation [None]
  - Balance disorder [None]
  - Decreased appetite [None]
  - Headache [None]
  - Erectile dysfunction [None]
  - Arthralgia [None]
  - Dyspnoea [None]
  - Fatigue [None]
  - Gingival pain [None]
  - Mood altered [None]
